FAERS Safety Report 5518823-4 (Version None)
Quarter: 2007Q4

REPORT INFORMATION
  Report Type: 
  Country: None (occurrence: None)
  Receive Date: 20071115
  Receipt Date: 20071107
  Transmission Date: 20080405
  Serious: Yes (Life-Threatening, Hospitalization)
  Sender: FDA-Public Use
  Company Number: GB-ABBOTT-07P-167-0423860-00

PATIENT
  Age: 75 Year
  Sex: Male
  Weight: 66 kg

DRUGS (18)
  1. CLARITHROMYCIN [Suspect]
     Indication: INFECTION
     Dates: start: 20070913, end: 20070914
  2. LAMOTRIGINE [Interacting]
     Indication: PARTIAL SEIZURES
     Dates: start: 20060601
  3. ACETYLSALICYLIC ACID SRT [Concomitant]
     Indication: ANTIPLATELET THERAPY
     Dates: end: 20070906
  4. FUROSEMIDE [Concomitant]
     Indication: FLUID OVERLOAD
     Dates: end: 20070902
  5. SIMVASTATIN [Concomitant]
     Indication: LIPIDS ABNORMAL
  6. THEOPHYLLINE [Concomitant]
     Indication: CHRONIC OBSTRUCTIVE PULMONARY DISEASE
  7. BECLOMETHASONE DIPROPIONATE [Concomitant]
     Indication: CHRONIC OBSTRUCTIVE PULMONARY DISEASE
  8. WARFARIN SODIUM [Concomitant]
     Indication: HEART VALVE REPLACEMENT
     Dates: start: 20070904
  9. FRUMIL [Concomitant]
     Indication: FLUID OVERLOAD
     Dates: start: 20070911, end: 20070918
  10. PARACETAMOL [Concomitant]
     Indication: PAIN
     Dates: start: 20070911
  11. NICORANDIL [Concomitant]
     Indication: VASODILATION PROCEDURE
     Dates: start: 20070912, end: 20070913
  12. NICORANDIL [Concomitant]
     Dates: start: 20070913
  13. ENOXAPARIN SODIUM [Concomitant]
     Indication: THROMBOSIS PROPHYLAXIS
     Dates: start: 20070910, end: 20070911
  14. EPINEPHRINE [Concomitant]
     Indication: DRUG USE FOR UNKNOWN INDICATION
     Dosage: VARIABLE DOSAGE
     Dates: start: 20070904, end: 20070908
  15. NOREPINEPHRINE [Concomitant]
     Indication: DRUG USE FOR UNKNOWN INDICATION
     Dates: start: 20070904, end: 20070908
  16. DOPAMINE HCL [Concomitant]
     Indication: HAEMODYNAMIC INSTABILITY
     Dates: start: 20070904, end: 20070908
  17. INSULIN [Concomitant]
     Indication: DIABETES MELLITUS INADEQUATE CONTROL
     Dates: start: 20070904, end: 20070908
  18. FUROSEMIDE [Concomitant]
     Dates: start: 20070904, end: 20070908

REACTIONS (5)
  - CONVULSION [None]
  - DRUG INTERACTION [None]
  - FOAMING AT MOUTH [None]
  - OBSTRUCTIVE AIRWAYS DISORDER [None]
  - TREMOR [None]
